FAERS Safety Report 15425628 (Version 1)
Quarter: 2018Q3

REPORT INFORMATION
  Report Type: Spontaneous
  Country: US (occurrence: US)
  Receive Date: 20180917
  Receipt Date: 20180917
  Transmission Date: 20181010
  Serious: Yes (Death)
  Sender: FDA-Public Use
  Company Number: None

PATIENT
  Age: 50 Year
  Sex: Male
  Weight: 136.08 kg

DRUGS (1)
  1. RITUXIMAB. [Suspect]
     Active Substance: RITUXIMAB
     Indication: TUMOUR LYSIS SYNDROME
     Dates: start: 20180808, end: 20180808

REACTIONS (2)
  - Multiple organ dysfunction syndrome [None]
  - Tumour lysis syndrome [None]

NARRATIVE: CASE EVENT DATE: 20180808
